FAERS Safety Report 6638401-3 (Version None)
Quarter: 2010Q1

REPORT INFORMATION
  Report Type: 
  Country: None (occurrence: None)
  Receive Date: 20100317
  Receipt Date: 20100305
  Transmission Date: 20100710
  Serious: Yes (Hospitalization)
  Sender: FDA-Public Use
  Company Number: B0639076A

PATIENT
  Sex: Female

DRUGS (3)
  1. PAZOPANIB [Suspect]
     Indication: NEOPLASM
     Route: 048
     Dates: start: 20100216, end: 20100304
  2. IFOSFAMIDE [Suspect]
     Indication: NEOPLASM
     Route: 051
     Dates: start: 20100223, end: 20100225
  3. PANZYTRAT [Concomitant]
     Indication: PANCREATIC CARCINOMA
     Route: 048
     Dates: start: 20031101

REACTIONS (1)
  - FEBRILE NEUTROPENIA [None]
